FAERS Safety Report 23723590 (Version 1)
Quarter: 2024Q2

REPORT INFORMATION
  Report Type: Spontaneous
  Country: GB (occurrence: GB)
  Receive Date: 20240409
  Receipt Date: 20240409
  Transmission Date: 20240716
  Serious: Yes (Hospitalization)
  Sender: FDA-Public Use
  Company Number: GB-ANIPHARMA-2024-UK-000069

PATIENT
  Age: 63 Year
  Sex: Female

DRUGS (1)
  1. ANASTROZOLE [Suspect]
     Active Substance: ANASTROZOLE
     Indication: Adverse drug reaction
     Dosage: ONE TABLET A DAY
     Route: 048
     Dates: start: 20230408, end: 20240327

REACTIONS (1)
  - Uterine pain [Recovering/Resolving]

NARRATIVE: CASE EVENT DATE: 20240320
